FAERS Safety Report 7515533-9 (Version None)
Quarter: 2011Q2

REPORT INFORMATION
  Report Type: 
  Country: None (occurrence: None)
  Receive Date: 20110601
  Receipt Date: 20100702
  Transmission Date: 20111010
  Serious: No
  Sender: FDA-Public Use
  Company Number: US-PFIZER INC-2010073297

PATIENT
  Sex: Female

DRUGS (11)
  1. GABAPENTIN [Concomitant]
     Dosage: 600MG FOUR TIMES DAILY
  2. DOXEPIN [Concomitant]
     Dosage: 50 MG DAILY
  3. DICLOFENAC [Concomitant]
     Dosage: 75MG TWO TIMES DAILY
  4. CHANTIX [Suspect]
     Indication: SMOKING CESSATION THERAPY
     Dosage: 0.5 MG, 1X/DAY
     Route: 048
     Dates: start: 20100524, end: 20100101
  5. CHANTIX [Suspect]
     Dosage: 0.5 MG, 2X/DAY
     Route: 048
  6. CHANTIX [Suspect]
     Dosage: 1 MG, 2X/DAY
     Route: 048
     Dates: end: 20100101
  7. SIMVASTATIN [Concomitant]
     Dosage: 20MG DAILY
  8. OXYCODONE [Concomitant]
     Indication: CYST
     Dosage: 15MG FOUR TIMES DAILY
  9. ALENDRONIC ACID [Concomitant]
     Dosage: 1 WEEKLY
  10. ACETYLSALICYLIC ACID [Concomitant]
     Dosage: UNK
  11. PRINZIDE [Concomitant]
     Dosage: UNK

REACTIONS (4)
  - DRUG INEFFECTIVE [None]
  - NAUSEA [None]
  - MALAISE [None]
  - VOMITING [None]
